FAERS Safety Report 5802643-7 (Version None)
Quarter: 2008Q3

REPORT INFORMATION
  Report Type: 
  Country: None (occurrence: None)
  Receive Date: 20080708
  Receipt Date: 20080630
  Transmission Date: 20090109
  Serious: No
  Sender: FDA-Public Use
  Company Number: US-BAYER-200827004NA

PATIENT
  Age: 24 Year
  Sex: Female

DRUGS (3)
  1. MIRENA [Suspect]
     Indication: CONTRACEPTION
     Route: 015
     Dates: start: 20080325, end: 20080512
  2. BUSPAR [Concomitant]
     Indication: ANXIETY
  3. ZOLOFT [Concomitant]
     Indication: ANXIETY

REACTIONS (4)
  - ABDOMINAL PAIN [None]
  - INTRA-UTERINE CONTRACEPTIVE DEVICE EXPELLED [None]
  - SMEAR CERVIX ABNORMAL [None]
  - VAGINAL PAIN [None]
